FAERS Safety Report 14574515 (Version 1)
Quarter: 2018Q1

REPORT INFORMATION
  Report Type: Spontaneous
  Country: GB (occurrence: GB)
  Receive Date: 20180224
  Receipt Date: 20180224
  Transmission Date: 20180509
  Serious: Yes (Disabling)
  Sender: FDA-Public Use
  Company Number: None

PATIENT
  Sex: Female
  Weight: 20 kg

DRUGS (3)
  1. SINGULAIR [Suspect]
     Active Substance: MONTELUKAST SODIUM
     Indication: RHINITIS
     Dates: start: 20120201, end: 20150211
  2. MULTI VITAMINS [Concomitant]
     Active Substance: VITAMINS
  3. SINGULAIR [Suspect]
     Active Substance: MONTELUKAST SODIUM
     Indication: ASTHMA
     Dates: start: 20120201, end: 20150211

REACTIONS (4)
  - Aggression [None]
  - Depression [None]
  - Obsessive-compulsive disorder [None]
  - Personality disorder [None]

NARRATIVE: CASE EVENT DATE: 20140215
